FAERS Safety Report 5916036-5 (Version None)
Quarter: 2008Q4

REPORT INFORMATION
  Report Type: 
  Country: None (occurrence: None)
  Receive Date: 20081013
  Receipt Date: 20080924
  Transmission Date: 20090506
  Serious: Yes (Hospitalization)
  Sender: FDA-Public Use
  Company Number: PH-BAYER-200827620GPV

PATIENT
  Age: 13 Year
  Sex: Female

DRUGS (11)
  1. CAMPATH [Suspect]
     Indication: IMMUNOSUPPRESSION
     Dosage: TOTAL DAILY DOSE: 20 MG
     Route: 065
  2. CAMPATH [Suspect]
     Dosage: TOTAL DAILY DOSE: 20 MG
     Route: 065
  3. CYCLOSPORINE [Suspect]
     Indication: IMMUNOSUPPRESSION
     Route: 065
  4. MYCOPHENOLATE MOFETIL [Suspect]
     Indication: IMMUNOSUPPRESSION
     Dosage: TOTAL DAILY DOSE: 1200 MG/M2
     Route: 065
  5. METHYLPREDNISOLONE [Concomitant]
     Indication: PREMEDICATION
     Route: 065
  6. ACETAMINOPHEN [Concomitant]
     Indication: PREMEDICATION
     Route: 065
  7. DIPHENHYDRAMINE HCL [Concomitant]
     Indication: PREMEDICATION
     Route: 065
  8. ISONIAZID [Concomitant]
     Indication: INFECTION PROPHYLAXIS
     Route: 065
  9. COTRIMOXAZOLE [Concomitant]
     Indication: INFECTION PROPHYLAXIS
     Route: 065
  10. VALACYCLOVIR [Concomitant]
     Indication: INFECTION PROPHYLAXIS
     Route: 065
  11. NYSTATIN [Concomitant]
     Indication: INFECTION PROPHYLAXIS
     Route: 065

REACTIONS (4)
  - DIARRHOEA [None]
  - FEBRILE NEUTROPENIA [None]
  - PERINEPHRIC ABSCESS [None]
  - PYREXIA [None]
